FAERS Safety Report 10643516 (Version 1)
Quarter: 2014Q4

REPORT INFORMATION
  Report Type: Spontaneous
  Country: DE (occurrence: DE)
  Receive Date: 20141210
  Receipt Date: 20141210
  Transmission Date: 20150529
  Serious: Yes (Hospitalization, Other)
  Sender: FDA-Public Use
  Company Number: DE-TEVA-526341GER

PATIENT
  Age: 0 Year
  Sex: Female
  Weight: 3.18 kg

DRUGS (6)
  1. AMITRIPTYLIN [Suspect]
     Active Substance: AMITRIPTYLINE
     Indication: POSTPARTUM DEPRESSION
     Dosage: 25 MILLIGRAM DAILY;
     Route: 063
     Dates: start: 20140722, end: 20140723
  2. THYRONAJOD [Concomitant]
     Active Substance: LEVOTHYROXINE SODIUM\POTASSIUM IODIDE
     Indication: HYPOTHYROIDISM
     Dosage: 100 MICROGRAM PROBABLY  FURTHER INTAKE
     Route: 063
  3. AMITRIPTYLIN [Suspect]
     Active Substance: AMITRIPTYLINE
     Route: 063
     Dates: start: 20140726, end: 20140731
  4. TRIMIPRAMINE [Concomitant]
     Active Substance: TRIMIPRAMINE
     Indication: POSTPARTUM DEPRESSION
     Dosage: 25 MILLIGRAM DAILY;
     Route: 063
  5. AMITRIPTYLIN [Suspect]
     Active Substance: AMITRIPTYLINE
     Dosage: 50 MILLIGRAM DAILY;
     Route: 063
     Dates: start: 20140724, end: 20140725
  6. SERTRALINE [Concomitant]
     Active Substance: SERTRALINE HYDROCHLORIDE
     Indication: POSTPARTUM DEPRESSION
     Dosage: 25 MILLIGRAM DAILY;
     Route: 063
     Dates: start: 20140718, end: 20140721

REACTIONS (3)
  - Respiratory distress [Recovered/Resolved]
  - Exposure during breast feeding [Unknown]
  - Myoclonus [Recovered/Resolved]
